FAERS Safety Report 9060058 (Version 1)
Quarter: 2013Q1

REPORT INFORMATION
  Report Type: Spontaneous
  Country: US (occurrence: None)
  Receive Date: 20130118
  Receipt Date: 20130118
  Transmission Date: 20140127
  Serious: Yes (Death)
  Sender: FDA-Public Use
  Company Number: AUR-APL-2013-00382

PATIENT
  Age: 58 Year
  Sex: Female

DRUGS (2)
  1. FLUOXETINE (FLUOXETINE) [Suspect]
     Indication: PRODUCT USED FOR UNKNOWN INDICATION
  2. METHADONE (METHADONE) [Suspect]
     Indication: PRODUCT USED FOR UNKNOWN INDICATION
     Dosage: ORAL
     Route: 048

REACTIONS (2)
  - Drug abuse [None]
  - Toxicity to various agents [None]
